FAERS Safety Report 9922288 (Version 2)
Quarter: 2014Q1

REPORT INFORMATION
  Report Type: Report from Study
  Country: BE (occurrence: BE)
  Receive Date: 20140225
  Receipt Date: 20140225
  Transmission Date: 20141002
  Serious: Yes (Hospitalization)
  Sender: FDA-Public Use
  Company Number: BE-ROCHE-1064158

PATIENT
  Age: 41 Year
  Sex: Female
  Weight: 61.6 kg

DRUGS (20)
  1. TRASTUZUMAB EMTANSINE [Suspect]
     Indication: HER-2 POSITIVE BREAST CANCER
     Dosage: LAST DOSE PRIOR TO SAE: 23/MAR/2012. LAST DOSE TAKEN: 222 MG
     Route: 042
     Dates: start: 20110712
  2. DICLOFENAC [Concomitant]
     Indication: BACK PAIN
     Route: 065
     Dates: start: 201106
  3. ZOMETA [Concomitant]
     Indication: METASTASES TO BONE
     Route: 065
     Dates: start: 20110705
  4. MEDROL [Concomitant]
     Indication: NAUSEA
     Route: 065
     Dates: start: 20110720, end: 201110
  5. MEDROL [Concomitant]
     Indication: VOMITING
  6. MEDROL [Concomitant]
     Indication: BACK PAIN
  7. OMEPRAZOLE [Concomitant]
     Indication: PROPHYLAXIS
     Route: 065
     Dates: start: 20110718, end: 20120508
  8. DUROGESIC [Concomitant]
     Indication: ARTHRALGIA
     Route: 065
     Dates: start: 20111028
  9. PARACETAMOL [Concomitant]
     Indication: ARTHRALGIA
     Route: 065
     Dates: start: 20111109, end: 20120508
  10. SOLU-MEDROL [Concomitant]
     Indication: INFUSION RELATED REACTION
     Route: 065
     Dates: start: 20120302, end: 20120302
  11. SOLU-MEDROL [Concomitant]
     Route: 065
     Dates: start: 20120323, end: 20120323
  12. SOLU-MEDROL [Concomitant]
     Route: 065
     Dates: start: 20120331, end: 20120331
  13. PERFUSALGAN [Concomitant]
     Indication: MENORRHAGIA
     Route: 065
     Dates: start: 20120314, end: 20120314
  14. EXACYL [Concomitant]
     Indication: MENORRHAGIA
     Route: 065
     Dates: start: 20120314, end: 20130427
  15. EXACYL [Concomitant]
     Indication: MOUTH HAEMORRHAGE
  16. EXACYL [Concomitant]
     Indication: EPISTAXIS
  17. EXACYL [Concomitant]
     Indication: HAEMATOMA
  18. CETIRIZINE [Concomitant]
     Indication: INFUSION RELATED REACTION
     Route: 065
     Dates: start: 20120302, end: 20120302
  19. PERTUZUMAB [Suspect]
     Indication: BREAST CANCER METASTATIC
     Dosage: LOADING DOSE. LAST DOSE PRIOR TO SAE: 23/MAR/2012.
     Route: 042
     Dates: start: 20110712, end: 20110712
  20. PERTUZUMAB [Suspect]
     Dosage: MAINTAINANCE DOSE. LAST DOSE PRIOR TO SAE: 23/MAR/2012.
     Route: 042

REACTIONS (1)
  - Mouth haemorrhage [Recovered/Resolved]
